FAERS Safety Report 19252679 (Version 1)
Quarter: 2021Q2

REPORT INFORMATION
  Report Type: Spontaneous
  Country: US (occurrence: US)
  Receive Date: 20210513
  Receipt Date: 20210513
  Transmission Date: 20210717
  Serious: No
  Sender: FDA-Public Use
  Company Number: None

PATIENT
  Age: 64 Year
  Sex: Male
  Weight: 104 kg

DRUGS (2)
  1. PACLITAXEL (PACLITAXEL 6MG/ML INJ,CONC,IV) [Suspect]
     Active Substance: PACLITAXEL
     Indication: LUNG NEOPLASM MALIGNANT
     Dosage: ?          OTHER ROUTE:IV?
     Route: 042
     Dates: start: 20210413, end: 20210413
  2. PACLITAXEL (PACLITAXEL 6MG/ML INJ,CONC,IV) [Suspect]
     Active Substance: PACLITAXEL
     Indication: SQUAMOUS CELL CARCINOMA OF LUNG
     Dosage: ?          OTHER ROUTE:IV?
     Route: 042
     Dates: start: 20210413, end: 20210413

REACTIONS (6)
  - Nausea [None]
  - Pruritus [None]
  - Infusion related reaction [None]
  - Hypotension [None]
  - Vomiting [None]
  - Urticaria [None]

NARRATIVE: CASE EVENT DATE: 20210413
